FAERS Safety Report 11008698 (Version 1)
Quarter: 2015Q2

REPORT INFORMATION
  Report Type: Spontaneous
  Country: US (occurrence: None)
  Receive Date: 20150409
  Receipt Date: 20150409
  Transmission Date: 20150821
  Serious: Yes (Life-Threatening, Hospitalization)
  Sender: FDA-Public Use
  Company Number: None

PATIENT
  Age: 94 Year
  Sex: Female
  Weight: 63.3 kg

DRUGS (15)
  1. FLUOCINONIDE (LIDEX) [Concomitant]
  2. DABIGATRAN ETEXILATE (PRADAXA) [Concomitant]
  3. METOPROLOL SUCCINATE (TOPROL-XL)] [Concomitant]
  4. VITAMIN A/C/E-MINERALS (OCUVITE) [Concomitant]
  5. LEVOTHYROXINE (SYNTHROID LEVOTHROID) [Concomitant]
  6. BRIMONIDINE (ALPHAGAN) [Concomitant]
  7. DABIGATRAN 150MG BOEHRINGER INGELHEIM [Suspect]
     Active Substance: DABIGATRAN
     Indication: ATRIAL FIBRILLATION
     Dosage: 1
     Route: 048
     Dates: start: 20131210, end: 20150315
  8. CYANOCOBALAMIN (VITAMIN B-12) [Concomitant]
  9. ERGOCALCIFEROL. [Concomitant]
     Active Substance: ERGOCALCIFEROL
  10. DOCUSATE SODIUM (COLACE) [Concomitant]
  11. SENNA (SENOKOT) [Concomitant]
  12. HYDROCORTISONE. [Concomitant]
     Active Substance: HYDROCORTISONE
  13. FUROSEMIDE (LASIX) [Concomitant]
  14. NEURONTIN [Concomitant]
     Active Substance: GABAPENTIN
  15. OXYCODONE (ROXICODONE) [Concomitant]

REACTIONS (9)
  - Haematochezia [None]
  - Hypovolaemic shock [None]
  - International normalised ratio increased [None]
  - Dyspnoea [None]
  - Gastrointestinal haemorrhage [None]
  - Diverticulum [None]
  - Rectal haemorrhage [None]
  - Hypotension [None]
  - Blood lactic acid abnormal [None]

NARRATIVE: CASE EVENT DATE: 20150315
